FAERS Safety Report 8293494-5 (Version None)
Quarter: 2012Q2

REPORT INFORMATION
  Report Type: 
  Country: None (occurrence: None)
  Receive Date: 20120417
  Receipt Date: 20120402
  Transmission Date: 20120825
  Serious: Yes (Other)
  Sender: FDA-Public Use
  Company Number: CHPA2012US008567

PATIENT
  Age: 61 Year
  Sex: Male

DRUGS (9)
  1. VICODIN [Concomitant]
     Dosage: 3 OR 4 TIMES A DAY
     Dates: start: 20060101
  2. ALEVE                              /00256202/ [Concomitant]
     Dosage: 200 MG, UNK
  3. PHENERGAN EXPECTORANT W/ CODEINE [Concomitant]
     Indication: COUGH
  4. DRUG THERAPY NOS [Concomitant]
  5. EXCEDRIN EXTRA STRENGTH TABLETS [Suspect]
     Indication: PAIN
     Dosage: 2 DF, 2 OR 3 TIMES A DAY
     Route: 048
     Dates: start: 19740101, end: 20120201
  6. NAPROXEN [Concomitant]
     Dosage: 500 MG, UNK
  7. FLEXERIL [Concomitant]
     Dosage: EVERY OTHER DAY
  8. EXCEDRIN EXTRA STRENGTH TABLETS [Suspect]
     Dosage: UNK, UNK
     Route: 048
  9. PROTONIX [Concomitant]

REACTIONS (6)
  - DYSPNOEA [None]
  - INCREASED UPPER AIRWAY SECRETION [None]
  - SWELLING FACE [None]
  - RASH [None]
  - INFLUENZA LIKE ILLNESS [None]
  - DIARRHOEA [None]
